FAERS Safety Report 5583373-6 (Version None)
Quarter: 2008Q1

REPORT INFORMATION
  Report Type: 
  Country: None (occurrence: None)
  Receive Date: 20080107
  Receipt Date: 20071226
  Transmission Date: 20080703
  Serious: Yes (Life-Threatening, Hospitalization)
  Sender: FDA-Public Use
  Company Number: JP-PFIZER INC-2007104330

PATIENT
  Sex: Male
  Weight: 65 kg

DRUGS (8)
  1. UNASYN [Suspect]
     Indication: INFECTION PROPHYLAXIS
     Dosage: DAILY DOSE:1.5GRAM
     Route: 042
     Dates: start: 20071204, end: 20071204
  2. ANAESTHETICS [Concomitant]
     Dates: start: 20071204, end: 20071204
  3. XYLOCAINE [Concomitant]
     Route: 008
     Dates: start: 20071204, end: 20071204
  4. ATROPINE SULFATE [Concomitant]
     Route: 042
     Dates: start: 20071204, end: 20071204
  5. THIOPENTAL SODIUM [Concomitant]
     Route: 042
     Dates: start: 20071204, end: 20071204
  6. MUSCULAX [Concomitant]
     Route: 042
     Dates: start: 20071204, end: 20071204
  7. ULTIVA [Concomitant]
     Route: 042
     Dates: start: 20071204, end: 20071204
  8. ISODINE [Concomitant]
     Route: 062
     Dates: start: 20071204, end: 20071204

REACTIONS (2)
  - ANAPHYLACTIC SHOCK [None]
  - CARDIAC ARREST [None]
